FAERS Safety Report 4885456-2 (Version None)
Quarter: 2005Q4

REPORT INFORMATION
  Report Type: 
  Country: None (occurrence: None)
  Receive Date: 20051220
  Receipt Date: 20041025
  Transmission Date: 20060501
  Serious: Yes (Other)
  Sender: FDA-Public Use
  Company Number: HQWYE125427OCT04

PATIENT
  Age: 69 Year
  Sex: Female
  Weight: 64.47 kg

DRUGS (2)
  1. EFFEXOR XR [Suspect]
     Indication: DEPRESSION
     Dosage: INTENTIONALLY TOOK A SECOND DOSE OF EFFEXOR XR 12 HOURS AFTER THE FIRST (OVERDOSE AMOUNT), ORAL
     Route: 048
     Dates: start: 20041024, end: 20041024
  2. POTASSIUM (POTASSIUM) [Concomitant]

REACTIONS (2)
  - INTENTIONAL OVERDOSE [None]
  - SUICIDAL IDEATION [None]
